FAERS Safety Report 10533527 (Version 1)
Quarter: 2014Q4

REPORT INFORMATION
  Report Type: Report from Study
  Country: BR (occurrence: BR)
  Receive Date: 20141022
  Receipt Date: 20141022
  Transmission Date: 20150529
  Serious: Yes (Death, Hospitalization, Other)
  Sender: FDA-Public Use
  Company Number: PHHY2014BR136621

PATIENT
  Age: 58 Year
  Sex: Male

DRUGS (1)
  1. SANDOSTATIN LAR DEPOT [Suspect]
     Active Substance: OCTREOTIDE ACETATE
     Indication: PANCREATIC CARCINOMA
     Dosage: UNK UKN, EVERY 30 DAYS
     Route: 065

REACTIONS (7)
  - Hepatic lesion [Unknown]
  - Vomiting [Unknown]
  - Pancreatitis bacterial [Fatal]
  - Bile duct obstruction [Fatal]
  - Malaise [Unknown]
  - Yellow skin [Unknown]
  - Hepatomegaly [Unknown]

NARRATIVE: CASE EVENT DATE: 20140811
